FAERS Safety Report 25923362 (Version 1)
Quarter: 2025Q4

REPORT INFORMATION
  Report Type: Spontaneous
  Country: US (occurrence: None)
  Receive Date: 20251015
  Receipt Date: 20251015
  Transmission Date: 20260118
  Serious: No
  Sender: BANNER
  Company Number: US-PTA-006253

PATIENT
  Sex: Female

DRUGS (1)
  1. NAPROXEN [Suspect]
     Active Substance: NAPROXEN
     Indication: Endometriosis
     Route: 048

REACTIONS (1)
  - Therapeutic product effective for unapproved indication [Unknown]
